FAERS Safety Report 8311552-3 (Version None)
Quarter: 2012Q2

REPORT INFORMATION
  Report Type: 
  Country: None (occurrence: None)
  Receive Date: 20120425
  Receipt Date: 20120413
  Transmission Date: 20120825
  Serious: Yes (Hospitalization, Other)
  Sender: FDA-Public Use
  Company Number: FR-BRISTOL-MYERS SQUIBB COMPANY-16529661

PATIENT
  Age: 88 Year
  Sex: Female

DRUGS (7)
  1. COUMADIN [Suspect]
     Indication: ATRIAL FIBRILLATION
     Dosage: RESTARTED ON 23FEB12
     Route: 048
  2. BUMETANIDE [Concomitant]
  3. VALSARTAN [Concomitant]
  4. PROPRANOLOL [Concomitant]
  5. TANGANIL [Concomitant]
  6. ACETAMINOPHEN [Concomitant]
  7. DIGOXIN [Concomitant]

REACTIONS (5)
  - PULMONARY ARTERIAL HYPERTENSION [None]
  - GASTRIC ULCER [None]
  - LEFT VENTRICULAR HYPERTROPHY [None]
  - HAEMATEMESIS [None]
  - OESOPHAGITIS [None]
